FAERS Safety Report 9108843 (Version 1)
Quarter: 2013Q1

REPORT INFORMATION
  Report Type: Spontaneous
  Country: ES (occurrence: ES)
  Receive Date: 20130222
  Receipt Date: 20130222
  Transmission Date: 20140127
  Serious: Yes (Hospitalization)
  Sender: FDA-Public Use
  Company Number: ES-PFIZER INC-2013064972

PATIENT
  Age: 76 Year
  Sex: Female

DRUGS (3)
  1. PREVENCOR [Suspect]
     Indication: HYPERCHOLESTEROLAEMIA
     Dosage: 40 MG, 1X/DAY
     Route: 048
     Dates: start: 201207, end: 201208
  2. ADIRO [Concomitant]
     Dosage: 300 MG, 1X/DAY
     Route: 048
     Dates: start: 2011
  3. OMEPRAZOLE [Concomitant]

REACTIONS (1)
  - Drug-induced liver injury [Unknown]
